FAERS Safety Report 6697308-6 (Version None)
Quarter: 2010Q2

REPORT INFORMATION
  Report Type: 
  Country: None (occurrence: None)
  Receive Date: 20100422
  Receipt Date: 20100414
  Transmission Date: 20101027
  Serious: Yes (Other)
  Sender: FDA-Public Use
  Company Number: 20108609

PATIENT
  Sex: Male

DRUGS (1)
  1. LIORESAL [Suspect]
     Indication: MUSCLE SPASTICITY
     Dosage: MCG, DAILY, INTRATHECAL
     Route: 037

REACTIONS (10)
  - ABDOMINAL DISTENSION [None]
  - EATING DISORDER [None]
  - JOINT LOCK [None]
  - MEDICAL DEVICE COMPLICATION [None]
  - NAUSEA [None]
  - PRURITUS [None]
  - PYREXIA [None]
  - TREMOR [None]
  - UNDERDOSE [None]
  - VOMITING [None]
